FAERS Safety Report 4787966-5 (Version None)
Quarter: 2005Q3

REPORT INFORMATION
  Report Type: 
  Country: None (occurrence: None)
  Receive Date: 20050926
  Receipt Date: 20041215
  Transmission Date: 20060218
  Serious: Yes (Other)
  Sender: FDA-Public Use
  Company Number: US-JNJFOC-20041206808

PATIENT
  Age: 33 Year
  Sex: Female
  Weight: 54.8852 kg

DRUGS (4)
  1. ORTHO-NOVUM 7/7/7-28 [Suspect]
     Indication: CONTRACEPTION
     Dosage: 1 DOSE(S), 1 IN 1 DAY; ORAL
     Route: 048
  2. TOPAMAX [Concomitant]
  3. BOTOX (BOTULINUM TOXIN TYPE A) INJECTION [Concomitant]
  4. HYDROMORPHONE [Concomitant]

REACTIONS (2)
  - DRUG EXPOSURE DURING PREGNANCY [None]
  - PREGNANCY ON ORAL CONTRACEPTIVE [None]
